FAERS Safety Report 22043897 (Version 1)
Quarter: 2023Q1

REPORT INFORMATION
  Report Type: Spontaneous
  Country: GB (occurrence: GB)
  Receive Date: 20230228
  Receipt Date: 20230228
  Transmission Date: 20230417
  Serious: Yes (Other)
  Sender: FDA-Public Use
  Company Number: None

PATIENT
  Age: 73 Year
  Sex: Female
  Weight: 54 kg

DRUGS (3)
  1. ATORVASTATIN [Suspect]
     Active Substance: ATORVASTATIN
     Indication: Hyperlipidaemia
     Dosage: AT NIGHT
     Route: 048
     Dates: start: 20230131
  2. AMITRIPTYLINE HYDROCHLORIDE [Concomitant]
     Active Substance: AMITRIPTYLINE HYDROCHLORIDE
     Dosage: 1-2 AT BED TIME
     Dates: start: 20221207
  3. BISACODYL [Concomitant]
     Active Substance: BISACODYL
     Dosage: AT BED TIME
     Dates: start: 20221207, end: 20230106

REACTIONS (2)
  - Lip swelling [Unknown]
  - Lip blister [Unknown]

NARRATIVE: CASE EVENT DATE: 20230210
